FAERS Safety Report 8489358-4 (Version None)
Quarter: 2012Q3

REPORT INFORMATION
  Report Type: 
  Country: None (occurrence: None)
  Receive Date: 20120705
  Receipt Date: 20120626
  Transmission Date: 20120928
  Serious: Yes (Hospitalization, Other)
  Sender: FDA-Public Use
  Company Number: US-ASTRAZENECA-2011SE62276

PATIENT
  Age: 56 Year
  Sex: Male

DRUGS (13)
  1. SEROQUEL [Suspect]
     Route: 048
  2. PRILOSEC OTC [Suspect]
     Route: 048
  3. NEXIUM [Concomitant]
  4. DILAUDID [Concomitant]
     Indication: PAIN
     Dosage: FOUR TIMES A DAY
  5. PROTONIX [Concomitant]
  6. SEROQUEL [Suspect]
     Route: 048
  7. ZANTAC [Concomitant]
  8. SEROQUEL [Suspect]
     Route: 048
  9. HALDOL [Concomitant]
  10. SEROQUEL [Suspect]
     Indication: SCHIZOPHRENIA
     Route: 048
  11. PREVACID [Concomitant]
  12. SEROQUEL [Suspect]
     Indication: BIPOLAR DISORDER
     Route: 048
  13. SEROQUEL [Suspect]
     Route: 048

REACTIONS (11)
  - TOURETTE'S DISORDER [None]
  - PAIN [None]
  - CONVULSION [None]
  - ADVERSE EVENT [None]
  - DRUG DOSE OMISSION [None]
  - ANKLE FRACTURE [None]
  - GASTROOESOPHAGEAL REFLUX DISEASE [None]
  - FOOT FRACTURE [None]
  - HALLUCINATION, AUDITORY [None]
  - HALLUCINATION [None]
  - PSYCHOTIC DISORDER [None]
